FAERS Safety Report 11659690 (Version 10)
Quarter: 2019Q2

REPORT INFORMATION
  Report Type: Spontaneous
  Country: US (occurrence: US)
  Receive Date: 20151026
  Receipt Date: 20190404
  Transmission Date: 20190711
  Serious: Yes (Other)
  Sender: FDA-Public Use
  Company Number: US-PFIZER INC-2015033367

PATIENT
  Age: 69 Year
  Sex: Male
  Weight: 76.19 kg

DRUGS (5)
  1. REVATIO [Suspect]
     Active Substance: SILDENAFIL CITRATE
     Indication: CANCER SURGERY
     Dosage: 20 MG, ONCE A DAY
     Route: 048
  2. REVATIO [Suspect]
     Active Substance: SILDENAFIL CITRATE
     Indication: RADIATION INJURY
  3. REVATIO [Suspect]
     Active Substance: SILDENAFIL CITRATE
     Indication: PROSTATOMEGALY
  4. REVATIO [Suspect]
     Active Substance: SILDENAFIL CITRATE
     Indication: INFECTION PROPHYLAXIS
  5. REVATIO [Suspect]
     Active Substance: SILDENAFIL CITRATE
     Indication: RADIATION PROSTATITIS

REACTIONS (5)
  - Accident [Unknown]
  - Immunodeficiency [Unknown]
  - Cystitis [Unknown]
  - Prostate infection [Unknown]
  - Product use in unapproved indication [Unknown]
